FAERS Safety Report 16712104 (Version 1)
Quarter: 2019Q3

REPORT INFORMATION
  Report Type: Report from Study
  Country: IT (occurrence: IT)
  Receive Date: 20190816
  Receipt Date: 20190816
  Transmission Date: 20191004
  Serious: Yes (Hospitalization)
  Sender: FDA-Public Use
  Company Number: IT-MYLANLABS-2019M1076233

PATIENT
  Age: 80 Year
  Sex: Male

DRUGS (6)
  1. BRUFEN 600 MG GRANULATO EFFERVESCENTE [Suspect]
     Active Substance: IBUPROFEN
     Indication: BACK PAIN
     Dosage: 3 DOSAGE FORM, QD
     Dates: start: 20180618, end: 20180625
  2. METFORMIN [Concomitant]
     Active Substance: METFORMIN HYDROCHLORIDE
     Dosage: UNK
  3. GLICLAZIDE [Concomitant]
     Active Substance: GLICLAZIDE
     Dosage: UNK
  4. AMIODARONE [Concomitant]
     Active Substance: AMIODARONE
     Dosage: UNK
  5. LANOXIN [Concomitant]
     Active Substance: DIGOXIN
     Dosage: UNK
  6. LASIX [Concomitant]
     Active Substance: FUROSEMIDE
     Dosage: UNK

REACTIONS (4)
  - Gastric disorder [Recovering/Resolving]
  - Anaemia [Recovering/Resolving]
  - Melaena [Recovering/Resolving]
  - Cardiac failure [Recovering/Resolving]

NARRATIVE: CASE EVENT DATE: 20180630
